FAERS Safety Report 6955233-7 (Version None)
Quarter: 2010Q3

REPORT INFORMATION
  Report Type: 
  Country: None (occurrence: None)
  Receive Date: 20100830
  Receipt Date: 20100816
  Transmission Date: 20110219
  Serious: No
  Sender: FDA-Public Use
  Company Number: US-ELI_LILLY_AND_COMPANY-US201008004504

PATIENT
  Sex: Female

DRUGS (14)
  1. ZYPREXA ZYDIS [Suspect]
     Indication: BIPOLAR DISORDER
     Dosage: 5 MG, DAILY (1/D)
  2. CYMBALTA [Suspect]
     Indication: BIPOLAR I DISORDER
     Dosage: 60 MG, DAILY (1/D)
  3. STRATTERA [Suspect]
     Indication: ATTENTION DEFICIT/HYPERACTIVITY DISORDER
     Dosage: 40 MG, DAILY (1/D)
  4. STRATTERA [Suspect]
     Dosage: 60 MG, UNK
  5. STRATTERA [Suspect]
     Dosage: 80 MG, UNK
     Dates: start: 20100722
  6. STRATTERA [Suspect]
     Dosage: 60 MG, UNK
     Dates: start: 20100816
  7. AMARYL [Concomitant]
  8. JANUMET [Concomitant]
  9. CENESTIN [Concomitant]
  10. LEVOTHYROXINE [Concomitant]
  11. ADVAIR DISKUS 100/50 [Concomitant]
  12. TRICOR [Concomitant]
  13. PREVACID [Concomitant]
  14. LAMOTRIGINE [Concomitant]

REACTIONS (10)
  - BLOOD GLUCOSE INCREASED [None]
  - BLOOD TRIGLYCERIDES INCREASED [None]
  - EXERCISE TOLERANCE DECREASED [None]
  - FALL [None]
  - HYPERHIDROSIS [None]
  - INJURY [None]
  - OEDEMA PERIPHERAL [None]
  - OLIGURIA [None]
  - RENAL IMPAIRMENT [None]
  - URINARY RETENTION [None]
